FAERS Safety Report 11263542 (Version 1)
Quarter: 2015Q3

REPORT INFORMATION
  Report Type: Spontaneous
  Country: US (occurrence: US)
  Receive Date: 20150713
  Receipt Date: 20150713
  Transmission Date: 20151125
  Serious: No
  Sender: FDA-Public Use
  Company Number: US-AMGEN-USASP2015068392

PATIENT
  Age: 62 Year
  Sex: Female

DRUGS (1)
  1. ENBREL [Suspect]
     Active Substance: ETANERCEPT
     Indication: RHEUMATOID ARTHRITIS
     Dosage: 50 MG, QWK
     Route: 058

REACTIONS (7)
  - Gait disturbance [Unknown]
  - Bronchitis [Recovered/Resolved]
  - Injection site rash [Unknown]
  - Injection site reaction [Unknown]
  - Limb discomfort [Unknown]
  - Tooth infection [Recovered/Resolved]
  - Injection site pain [Unknown]
